FAERS Safety Report 23277107 (Version 1)
Quarter: 2023Q4

REPORT INFORMATION
  Report Type: Report from Study
  Country: US (occurrence: US)
  Receive Date: 20231208
  Receipt Date: 20231208
  Transmission Date: 20240110
  Serious: Yes (Hospitalization)
  Sender: FDA-Public Use
  Company Number: US-SERVIER-S23014012

PATIENT

DRUGS (2)
  1. NIVOLUMAB [Suspect]
     Active Substance: NIVOLUMAB
     Indication: Cholangiocarcinoma
     Dosage: 241.8 MG (3 MG/KG), EVERY 3 WEEKS
     Route: 042
     Dates: start: 20231120
  2. IPILIMUMAB [Suspect]
     Active Substance: IPILIMUMAB
     Indication: Cholangiocarcinoma
     Dosage: 80.6 MG (1 MG/KG), EVERY 3 WEEKS
     Route: 042
     Dates: start: 20231120

REACTIONS (2)
  - Rash [Not Recovered/Not Resolved]
  - Pyrexia [Recovered/Resolved]

NARRATIVE: CASE EVENT DATE: 20231130
